FAERS Safety Report 25981024 (Version 1)
Quarter: 2025Q4

REPORT INFORMATION
  Report Type: Spontaneous
  Country: US (occurrence: None)
  Receive Date: 20251030
  Receipt Date: 20251030
  Transmission Date: 20260118
  Serious: No
  Sender: FDA-CTU
  Company Number: None

PATIENT
  Age: 29 Year
  Sex: Male
  Weight: 92.25 kg

DRUGS (9)
  1. CAPLYTA [Suspect]
     Active Substance: LUMATEPERONE
     Indication: Adjuvant therapy
     Dosage: OTHER QUANTITY : 1 CAPSULE(S);?FREQUENCY : AT BEDTIME;?
     Route: 048
     Dates: start: 20251024
  2. CAPLYTA [Suspect]
     Active Substance: LUMATEPERONE
     Indication: Major depression
  3. CAPLYTA [Suspect]
     Active Substance: LUMATEPERONE
     Indication: Bipolar II disorder
  4. Lexapro (10mg) [Concomitant]
  5. Vyvanse (30mg) [Concomitant]
  6. Caplyta (10mg) [Concomitant]
  7. Protonix (40mg) [Concomitant]
  8. Metoprolol (25mg) [Concomitant]
  9. VITAMINS [Concomitant]
     Active Substance: VITAMINS

REACTIONS (3)
  - Pollakiuria [None]
  - Middle insomnia [None]
  - Enuresis [None]

NARRATIVE: CASE EVENT DATE: 20251028
